FAERS Safety Report 25949382 (Version 2)
Quarter: 2025Q4

REPORT INFORMATION
  Report Type: Spontaneous
  Country: CA (occurrence: None)
  Receive Date: 20251022
  Receipt Date: 20251120
  Transmission Date: 20260117
  Serious: Yes (Other)
  Sender: AMERICAN REGENT
  Company Number: CA-AMERICAN REGENT INC-2025003834

PATIENT
  Age: 40 Year
  Sex: Female

DRUGS (2)
  1. VENOFER [Suspect]
     Active Substance: IRON SUCROSE
     Indication: Iron deficiency anaemia
     Dosage: UNK
     Route: 041
  2. VENOFER [Suspect]
     Active Substance: IRON SUCROSE
     Indication: Drug intolerance
     Dosage: 1 DOSAGE FORM; 100MG/5ML
     Route: 041
     Dates: start: 20250519, end: 20250519

REACTIONS (1)
  - Urticaria [Unknown]

NARRATIVE: CASE EVENT DATE: 20250519
